FAERS Safety Report 11594676 (Version 1)
Quarter: 2015Q4

REPORT INFORMATION
  Report Type: Spontaneous
  Country: GB (occurrence: GB)
  Receive Date: 20151005
  Receipt Date: 20151005
  Transmission Date: 20160304
  Serious: Yes (Other)
  Sender: FDA-Public Use
  Company Number: PHHY2015GB116453

PATIENT
  Age: 63 Year
  Sex: Female

DRUGS (5)
  1. HYDROCORTISONE. [Suspect]
     Active Substance: HYDROCORTISONE
     Dosage: 20 MG
     Route: 065
  2. LEVOTHYROXINE. [Suspect]
     Active Substance: LEVOTHYROXINE
     Indication: THYROID DISORDER
     Dosage: 100 UG
     Route: 065
  3. LIOTHYRONINE SODIUM,SODIUM SALT [Suspect]
     Active Substance: LIOTHYRONINE SODIUM
     Indication: THYROID DISORDER
     Dosage: 20 UG
     Route: 065
  4. HYDROCORTISONE. [Suspect]
     Active Substance: HYDROCORTISONE
     Indication: THYROID DISORDER
     Dosage: 15 MG
     Route: 065
  5. LEVOTHYROXINE. [Suspect]
     Active Substance: LEVOTHYROXINE
     Dosage: 50 UG
     Route: 065

REACTIONS (13)
  - Abasia [Not Recovered/Not Resolved]
  - Body temperature decreased [Not Recovered/Not Resolved]
  - Urine output decreased [Unknown]
  - Overweight [Unknown]
  - Cardiac failure [Unknown]
  - Feeling cold [Not Recovered/Not Resolved]
  - Cardiac disorder [Unknown]
  - Dyspnoea [Not Recovered/Not Resolved]
  - Alopecia [Unknown]
  - Wrong technique in product usage process [Unknown]
  - Off label use [Unknown]
  - Malaise [Not Recovered/Not Resolved]
  - Hypersensitivity [Unknown]
